FAERS Safety Report 5493872-3 (Version None)
Quarter: 2007Q4

REPORT INFORMATION
  Report Type: 
  Country: None (occurrence: None)
  Receive Date: 20071019
  Receipt Date: 20071006
  Transmission Date: 20080405
  Serious: Yes (Death, Hospitalization)
  Sender: FDA-Public Use
  Company Number: SPI200700696

PATIENT
  Age: 63 Year
  Sex: Male

DRUGS (18)
  1. AMITIZA [Suspect]
     Dosage: 24 MCG, ORAL
     Route: 048
     Dates: start: 20070713, end: 20070914
  2. ACETAMINOPHEN [Concomitant]
  3. ASPIRIN [Concomitant]
  4. PROZAC [Concomitant]
  5. GABAPENTIN [Concomitant]
  6. MIRALAX [Concomitant]
  7. IBUPROFEN [Concomitant]
  8. METHADONE HCL [Concomitant]
  9. NEXIUM [Concomitant]
  10. MULTIVITAMIN [Concomitant]
  11. DITROPAN (OXYBUTYNIN) SLOW RELEASE TABLET [Concomitant]
  12. SENOKOT (SENNA ALEXANDRINA) [Concomitant]
  13. ZOCOR [Concomitant]
  14. ZANAFLEX [Concomitant]
  15. BACLOFEN [Concomitant]
  16. ZYRTEC [Concomitant]
  17. LISINOPRIL [Concomitant]
  18. MACROBID [Concomitant]

REACTIONS (9)
  - ACUTE MYOCARDIAL INFARCTION [None]
  - CONFUSIONAL STATE [None]
  - DRUG ADMINISTRATION ERROR [None]
  - HAEMATOCRIT DECREASED [None]
  - HAEMOGLOBIN DECREASED [None]
  - OBSTRUCTION GASTRIC [None]
  - PNEUMONIA ASPIRATION [None]
  - RENAL FAILURE ACUTE [None]
  - WHITE BLOOD CELL COUNT DECREASED [None]
